FAERS Safety Report 14903881 (Version 1)
Quarter: 2018Q2

REPORT INFORMATION
  Report Type: Spontaneous
  Country: IT (occurrence: IT)
  Receive Date: 20180516
  Receipt Date: 20180516
  Transmission Date: 20180711
  Serious: Yes (Hospitalization)
  Sender: FDA-Public Use
  Company Number: IT-VALIDUS PHARMACEUTICALS LLC-IT-2018VAL000760

PATIENT
  Age: 50 Year
  Sex: Male

DRUGS (5)
  1. LYRICA [Suspect]
     Active Substance: PREGABALIN
     Indication: SUICIDAL IDEATION
     Dosage: 28 DF, UNK
     Route: 048
     Dates: start: 20160521
  2. LASIX [Suspect]
     Active Substance: FUROSEMIDE
     Indication: SUICIDAL IDEATION
     Dosage: 30 DF, UNK
     Route: 048
     Dates: start: 20160521
  3. CYMBALTA [Concomitant]
     Active Substance: DULOXETINE HYDROCHLORIDE
     Indication: PRODUCT USED FOR UNKNOWN INDICATION
     Dosage: UNK
  4. ASPIRINETTA [Concomitant]
     Active Substance: ASPIRIN
     Indication: PRODUCT USED FOR UNKNOWN INDICATION
     Dosage: UNK
  5. BISOPROLOL FUMARATE. [Suspect]
     Active Substance: BISOPROLOL FUMARATE
     Indication: SUICIDAL IDEATION
     Dosage: 60 DF, QD
     Route: 048
     Dates: start: 20160521

REACTIONS (3)
  - Malaise [Recovering/Resolving]
  - Drug abuse [Unknown]
  - Muscle spasms [Recovering/Resolving]

NARRATIVE: CASE EVENT DATE: 20160523
